FAERS Safety Report 5988341-8 (Version None)
Quarter: 2008Q4

REPORT INFORMATION
  Report Type: 
  Country: None (occurrence: None)
  Receive Date: 20081204
  Receipt Date: 20081119
  Transmission Date: 20090506
  Serious: Yes (Hospitalization, Other)
  Sender: FDA-Public Use
  Company Number: KV200800337

PATIENT
  Age: 60 Year
  Sex: Female
  Weight: 131.5 kg

DRUGS (2)
  1. ISOSORBIDE MONONITRATE [Suspect]
     Indication: DRUG USE FOR UNKNOWN INDICATION
     Dosage: 60 MG, QD, ORAL
     Route: 048
     Dates: end: 20081118
  2. SEVERAL MEDICATIONS FOR HEALTH, DIABETES, BLOOD PRESSURE AND CHOLESTER [Concomitant]

REACTIONS (5)
  - ANXIETY [None]
  - CHEST PAIN [None]
  - HEART RATE INCREASED [None]
  - PANIC ATTACK [None]
  - PRODUCT QUALITY ISSUE [None]
